FAERS Safety Report 4617181-7 (Version None)
Quarter: 2005Q1

REPORT INFORMATION
  Report Type: 
  Country: None (occurrence: None)
  Receive Date: 20050323
  Receipt Date: 20050311
  Transmission Date: 20050727
  Serious: Yes (Other)
  Sender: FDA-Public Use
  Company Number: SE-GLAXOSMITHKLINE-B0375449A

PATIENT
  Age: 55 Year
  Sex: Female

DRUGS (1)
  1. ZYBAN [Suspect]
     Route: 065

REACTIONS (1)
  - DRUG DEPENDENCE [None]
